FAERS Safety Report 5893823-3 (Version None)
Quarter: 2008Q3

REPORT INFORMATION
  Report Type: 
  Country: None (occurrence: None)
  Receive Date: 20080923
  Receipt Date: 20071025
  Transmission Date: 20090109
  Serious: No
  Sender: FDA-Public Use
  Company Number: US-ASTRAZENECA-2007UW24955

PATIENT
  Age: 40 Year
  Sex: Female

DRUGS (7)
  1. SEROQUEL [Suspect]
     Route: 048
  2. RISPERDAL [Concomitant]
     Route: 048
  3. TRILFON [Concomitant]
     Route: 048
  4. LITHIUM CARBONATE [Concomitant]
     Route: 048
  5. LAMICTAL [Concomitant]
     Route: 048
  6. KLONOPIN [Concomitant]
     Route: 048
  7. ATIVAN [Concomitant]
     Route: 048

REACTIONS (1)
  - BLOOD PROLACTIN INCREASED [None]
